FAERS Safety Report 6707759-9 (Version None)
Quarter: 2010Q2

REPORT INFORMATION
  Report Type: 
  Country: None (occurrence: None)
  Receive Date: 20100503
  Receipt Date: 20090427
  Transmission Date: 20101027
  Serious: No
  Sender: FDA-Public Use
  Company Number: US-ASTRAZENECA-2008UW10420

PATIENT
  Age: 63 Year
  Sex: Male

DRUGS (6)
  1. NEXIUM [Suspect]
     Indication: GASTRITIS
     Route: 048
  2. NEXIUM [Suspect]
     Indication: GASTROOESOPHAGEAL REFLUX DISEASE
     Route: 048
  3. DARVOCET [Concomitant]
  4. ZESTRIL [Concomitant]
  5. DIAZEPAM [Concomitant]
  6. LORTAB [Concomitant]

REACTIONS (4)
  - ERUCTATION [None]
  - REFLUX OESOPHAGITIS [None]
  - REGURGITATION [None]
  - TONGUE COATED [None]
